FAERS Safety Report 6423978-3 (Version None)
Quarter: 2009Q4

REPORT INFORMATION
  Report Type: 
  Country: None (occurrence: None)
  Receive Date: 20091030
  Receipt Date: 20091030
  Transmission Date: 20100525
  Serious: Yes (Hospitalization)
  Sender: FDA-Public Use
  Company Number: None

PATIENT
  Sex: Female
  Weight: 79.8331 kg

DRUGS (1)
  1. CLINDAMYCIN HCL [Suspect]
     Indication: INFECTION PROPHYLAXIS
     Dosage: 4 CAPSULES 1 HOUR BEFORE APPT PO
     Route: 048
     Dates: start: 20090928, end: 20090928

REACTIONS (9)
  - ABDOMINAL PAIN UPPER [None]
  - CHILLS [None]
  - CLOSTRIDIAL INFECTION [None]
  - DEHYDRATION [None]
  - DIARRHOEA [None]
  - DIZZINESS [None]
  - LOSS OF CONSCIOUSNESS [None]
  - PYREXIA [None]
  - VOMITING [None]
